FAERS Safety Report 5705779-4 (Version None)
Quarter: 2008Q2

REPORT INFORMATION
  Report Type: 
  Country: None (occurrence: None)
  Receive Date: 20080415
  Receipt Date: 20080408
  Transmission Date: 20081010
  Serious: Yes (Other)
  Sender: FDA-Public Use
  Company Number: US-JNJFOC-20080402473

PATIENT
  Sex: Female

DRUGS (8)
  1. REMICADE [Suspect]
     Indication: CROHN'S DISEASE
     Route: 042
  2. TRAZODONE HCL [Concomitant]
     Indication: MIGRAINE
  3. IMITREX [Concomitant]
     Indication: HEADACHE
  4. INDERAL [Concomitant]
     Indication: HEADACHE
  5. MELOXICAM [Concomitant]
     Indication: ARTHRITIS
  6. FOSAMAX [Concomitant]
  7. VITAMIN D [Concomitant]
     Indication: CROHN'S DISEASE
  8. LIPITOR [Concomitant]

REACTIONS (3)
  - ANOSMIA [None]
  - PAROSMIA [None]
  - VIRAL INFECTION [None]
